FAERS Safety Report 7677182-1 (Version None)
Quarter: 2011Q3

REPORT INFORMATION
  Report Type: 
  Country: None (occurrence: None)
  Receive Date: 20110811
  Receipt Date: 20110728
  Transmission Date: 20111222
  Serious: Yes (Other)
  Sender: FDA-Public Use
  Company Number: US-ELI_LILLY_AND_COMPANY-US201102006301

PATIENT
  Sex: Female

DRUGS (9)
  1. FORTEO [Suspect]
     Dosage: 20 UG, QD
     Route: 065
     Dates: end: 20110602
  2. FORTEO [Suspect]
     Indication: OSTEOPOROSIS
     Dosage: 20 UG, DAILY (1/D)
     Route: 065
     Dates: start: 20101112
  3. CITALOPRAM HYDROBROMIDE [Concomitant]
     Dosage: 20 MG, UNK
     Dates: end: 20110603
  4. MICARDIS [Concomitant]
     Dosage: 40 MG, UNK
     Dates: end: 20110603
  5. NORVASC [Concomitant]
     Dosage: 5 MG, UNK
  6. CENTRUM SILVER [Concomitant]
     Dosage: UNK, QD
  7. ASPIRIN [Concomitant]
     Dosage: 81 MG, QD
  8. LEVOXYL [Concomitant]
     Dosage: 100 MG, UNK
  9. CALTRATE + D [Concomitant]
     Dosage: UNK, BID

REACTIONS (5)
  - OESOPHAGEAL CARCINOMA [None]
  - FATIGUE [None]
  - INJECTION SITE PAIN [None]
  - METASTASES TO LIVER [None]
  - HICCUPS [None]
